FAERS Safety Report 4698538-5 (Version None)
Quarter: 2005Q2

REPORT INFORMATION
  Report Type: 
  Country: None (occurrence: None)
  Receive Date: 20050622
  Receipt Date: 20050610
  Transmission Date: 20051028
  Serious: Yes (Life-Threatening, Hospitalization)
  Sender: FDA-Public Use
  Company Number: 2005053862

PATIENT
  Age: 16 Month
  Sex: Male
  Weight: 9.9791 kg

DRUGS (3)
  1. ZITHROMAX [Suspect]
     Indication: PNEUMONIA
     Dosage: 2.5 ML (2.5 ML, 1 IN 1 D) ORAL
     Route: 048
     Dates: start: 20050315
  2. ALBUTEROL (SABUTAMOL) [Concomitant]
  3. PULMICORT (BUDESONIDE)C [Concomitant]

REACTIONS (3)
  - ASTHENIA [None]
  - GENERALISED OEDEMA [None]
  - NEPHROTIC SYNDROME [None]
